FAERS Safety Report 15952712 (Version 1)
Quarter: 2019Q1

REPORT INFORMATION
  Report Type: Spontaneous
  Country: DE (occurrence: DE)
  Receive Date: 20190211
  Receipt Date: 20190211
  Transmission Date: 20190417
  Serious: Yes (Hospitalization, Other)
  Sender: FDA-Public Use
  Company Number: DE-MYLANLABS-2019M1012705

PATIENT
  Age: 77 Year
  Sex: Female

DRUGS (12)
  1. LEVOTHYROXINE SODIUM. [Concomitant]
     Active Substance: LEVOTHYROXINE SODIUM
  2. ADVANTAN [Suspect]
     Active Substance: METHYLPREDNISOLONE ACEPONATE
     Indication: STEVENS-JOHNSON SYNDROME
     Dosage: 60 MILLIGRAM
     Route: 048
  3. TILIDINE [Concomitant]
     Active Substance: TILIDINE
  4. AMLODIPINE [Concomitant]
     Active Substance: AMLODIPINE BESYLATE
  5. SULTAMICILLIN [Suspect]
     Active Substance: SULTAMICILLIN
     Indication: PNEUMONIA
     Dosage: UNK
  6. BISOPROLOL [Concomitant]
     Active Substance: BISOPROLOL
  7. DEKRISTOL [Concomitant]
     Active Substance: CHOLECALCIFEROL
  8. CLOBETASOL [Suspect]
     Active Substance: CLOBETASOL
     Indication: STEVENS-JOHNSON SYNDROME
     Dosage: UNK
     Route: 061
  9. PREDNICARBATE. [Suspect]
     Active Substance: PREDNICARBATE
     Indication: STEVENS-JOHNSON SYNDROME
     Dosage: UNK
     Route: 061
  10. PANTOPRAZOLE [Concomitant]
     Active Substance: PANTOPRAZOLE
  11. TAVANIC [Concomitant]
     Active Substance: LEVOFLOXACIN
     Indication: ANTIBIOTIC THERAPY
     Dosage: UNK
     Route: 042
  12. TOREM                              /01036501/ [Concomitant]
     Active Substance: TORSEMIDE

REACTIONS (14)
  - C-reactive protein increased [Recovering/Resolving]
  - Skin necrosis [Recovering/Resolving]
  - Drug eruption [Unknown]
  - Scab [Recovering/Resolving]
  - Escherichia infection [Recovering/Resolving]
  - Rash erythematous [Recovering/Resolving]
  - Ecthyma [Recovering/Resolving]
  - Skin plaque [Recovering/Resolving]
  - Interleukin level increased [Recovering/Resolving]
  - Perivascular dermatitis [Recovering/Resolving]
  - White blood cell count increased [Recovering/Resolving]
  - Bacteraemia [Recovered/Resolved]
  - Skin hyperplasia [Recovering/Resolving]
  - Rash macular [Recovering/Resolving]
